FAERS Safety Report 4276680-0 (Version None)
Quarter: 2004Q1

REPORT INFORMATION
  Report Type: 
  Country: None (occurrence: None)
  Receive Date: 20040120
  Receipt Date: 20040113
  Transmission Date: 20041129
  Serious: Yes (Disabling)
  Sender: FDA-Public Use
  Company Number: OMPQ-PR-0401L-0028

PATIENT
  Age: 64 Year
  Sex: Female

DRUGS (3)
  1. OMNIPAQUE 140 [Suspect]
     Indication: BACK PAIN
     Dosage: 2 ML; 1 ML AT TWO LEVELS, SINGLE
  2. BETAMETHASONE (CELESTONE) [Concomitant]
  3. BUPIVACAINE (MARACINE) [Concomitant]

REACTIONS (7)
  - HYPOAESTHESIA [None]
  - OEDEMA [None]
  - PARAPARESIS [None]
  - SPINAL CORD DISORDER [None]
  - SPINAL CORD INFARCTION [None]
  - SPINAL CORD INJURY [None]
  - THROMBOSIS [None]
